FAERS Safety Report 7531871-8 (Version None)
Quarter: 2011Q2

REPORT INFORMATION
  Report Type: 
  Country: None (occurrence: None)
  Receive Date: 20110608
  Receipt Date: 20110525
  Transmission Date: 20111010
  Serious: Yes (Other)
  Sender: FDA-Public Use
  Company Number: CA-JNJFOC-20110308932

PATIENT
  Sex: Female
  Weight: 100 kg

DRUGS (11)
  1. IMURAN [Concomitant]
     Route: 048
  2. TYLENOL ES [Concomitant]
     Dosage: Q4H PRN
  3. ATACAND [Concomitant]
  4. AMITRIPTYLINE HCL [Concomitant]
  5. DESLORATADINE [Concomitant]
     Indication: PREMEDICATION
     Route: 048
  6. TYLENOL W/ CODEINE NO. 3 [Concomitant]
  7. REMICADE [Suspect]
     Indication: CROHN'S DISEASE
     Dosage: A TOTAL OF 48 INFUSIONS
     Route: 042
  8. ACETAMINOPHEN [Concomitant]
     Indication: PREMEDICATION
     Route: 048
  9. HYDROCORTISONE [Concomitant]
     Indication: PREMEDICATION
     Route: 042
  10. LYRICA [Concomitant]
  11. DIPHENHYDRAMINE HCL [Concomitant]
     Indication: PREMEDICATION
     Route: 042

REACTIONS (2)
  - CHOLECYSTECTOMY [None]
  - INCISION SITE INFECTION [None]
